FAERS Safety Report 20000848 (Version 1)
Quarter: 2021Q4

REPORT INFORMATION
  Report Type: Spontaneous
  Country: US (occurrence: US)
  Receive Date: 20211026
  Receipt Date: 20211026
  Transmission Date: 20220303
  Serious: No
  Sender: FDA-Public Use
  Company Number: None

PATIENT

DRUGS (2)
  1. MAXALT-MLT [Suspect]
     Active Substance: RIZATRIPTAN BENZOATE
  2. ZOMIG [Suspect]
     Active Substance: ZOLMITRIPTAN

REACTIONS (3)
  - Migraine [None]
  - Therapy non-responder [None]
  - Liver function test increased [None]
